FAERS Safety Report 12469636 (Version 3)
Quarter: 2016Q3

REPORT INFORMATION
  Report Type: Spontaneous
  Country: US (occurrence: US)
  Receive Date: 20160615
  Receipt Date: 20160704
  Transmission Date: 20161109
  Serious: Yes (Other)
  Sender: FDA-Public Use
  Company Number: US-JNJFOC-20160521554

PATIENT
  Age: 77 Year
  Sex: Female
  Weight: 40.82 kg

DRUGS (5)
  1. DARZALEX [Suspect]
     Active Substance: DARATUMUMAB
     Indication: PRODUCT USED FOR UNKNOWN INDICATION
     Route: 042
     Dates: start: 20160503
  2. CENTRUM [Concomitant]
     Active Substance: VITAMINS
  3. CITRACAL PLUS [Concomitant]
     Active Substance: CALCIUM\MAGNESIUM\VITAMIN D\ZINC
  4. MORPHINE SULFATE. [Concomitant]
     Active Substance: MORPHINE SULFATE
  5. METHYLCELLULOSE [Concomitant]
     Active Substance: METHYLCELLULOSES

REACTIONS (9)
  - Mental impairment [Unknown]
  - Blood potassium decreased [Recovered/Resolved]
  - Injury [Recovered/Resolved]
  - Peripheral swelling [Unknown]
  - Product packaging issue [Unknown]
  - Fall [Recovered/Resolved]
  - Asthenia [Not Recovered/Not Resolved]
  - Arthropathy [Not Recovered/Not Resolved]
  - Fatigue [Not Recovered/Not Resolved]

NARRATIVE: CASE EVENT DATE: 201605
